FAERS Safety Report 17843595 (Version 1)
Quarter: 2020Q2

REPORT INFORMATION
  Report Type: Spontaneous
  Country: CA (occurrence: CA)
  Receive Date: 20200531
  Receipt Date: 20200531
  Transmission Date: 20200714
  Serious: Yes (Other)
  Sender: FDA-Public Use
  Company Number: CA-TEVA-2020-CA-1242447

PATIENT
  Age: 55 Year
  Sex: Female
  Weight: 70 kg

DRUGS (6)
  1. RISEDRONATE SODIUM. [Concomitant]
     Active Substance: RISEDRONATE SODIUM
  2. ROSUVASTATIN. [Concomitant]
     Active Substance: ROSUVASTATIN
  3. FLORADIX [ASCORBIC ACID; FERROUS GLUCONATE; PYRIDOXINE HYDROCHLORIDE; [Concomitant]
  4. PACLITAXEL. [Suspect]
     Active Substance: PACLITAXEL
     Indication: NEOPLASM MALIGNANT
     Route: 042
  5. CALCIUM CARBONATE. [Concomitant]
     Active Substance: CALCIUM CARBONATE
  6. TRAMACET [Concomitant]
     Active Substance: ACETAMINOPHEN\TRAMADOL

REACTIONS (5)
  - Dysphonia [Unknown]
  - Chest discomfort [Unknown]
  - Back pain [Unknown]
  - Erythema [Unknown]
  - Off label use [Unknown]
